FAERS Safety Report 21603397 (Version 1)
Quarter: 2022Q4

REPORT INFORMATION
  Report Type: Report from Study
  Country: BR (occurrence: BR)
  Receive Date: 20221116
  Receipt Date: 20221116
  Transmission Date: 20230113
  Serious: Yes (Hospitalization, Other)
  Sender: FDA-Public Use
  Company Number: BR-002147023-NVSC2022BR255071

PATIENT
  Age: 89 Year
  Sex: Female

DRUGS (2)
  1. EXELON [Suspect]
     Active Substance: RIVASTIGMINE TARTRATE
     Indication: Dementia Alzheimer^s type
     Dosage: 9 MG (5 CM, POSOLOGY UNKNOWN)(PATCH 5 (CM2) OR CONTAINS BASE LOADED WITH 9 MG RIVASTIGMINE / DAILY (
     Route: 062
     Dates: start: 2016
  2. EXELON [Suspect]
     Active Substance: RIVASTIGMINE TARTRATE
     Dosage: 18 MG (10 CM, POSOLOGY UNKNOWN) (PATCH 10 (CM2) OR CONTAINS BASE LOADED WITH 18 MG RIVASTIGMINE / DA
     Route: 062

REACTIONS (1)
  - Lower limb fracture [Unknown]
